FAERS Safety Report 6090990-6 (Version None)
Quarter: 2009Q1

REPORT INFORMATION
  Report Type: 
  Country: None (occurrence: None)
  Receive Date: 20090218
  Receipt Date: 20090218
  Transmission Date: 20090719
  Serious: No
  Sender: FDA-Public Use
  Company Number: None

PATIENT
  Sex: Female
  Weight: 47.1741 kg

DRUGS (1)
  1. FORTICAL [Suspect]
     Indication: BONE DENSITY DECREASED
     Dosage: ONE SPRAY 1X/DAY NASAL
     Route: 045
     Dates: start: 20080406, end: 20081230

REACTIONS (1)
  - TOOTH DISORDER [None]
